FAERS Safety Report 23138700 (Version 1)
Quarter: 2023Q4

REPORT INFORMATION
  Report Type: Spontaneous
  Country: US (occurrence: None)
  Receive Date: 20231101
  Receipt Date: 20231101
  Transmission Date: 20240110
  Serious: Yes (Hospitalization)
  Sender: FDA-Public Use
  Company Number: None

PATIENT
  Age: 62 Year
  Sex: Female
  Weight: 102.5 kg

DRUGS (7)
  1. OZEMPIC [Suspect]
     Active Substance: SEMAGLUTIDE
     Indication: Diabetes mellitus
     Dates: start: 20230405, end: 20230602
  2. LANTUS [Concomitant]
     Active Substance: INSULIN GLARGINE
  3. LOPERAMIDE [Concomitant]
     Active Substance: LOPERAMIDE
  4. NADOLOL [Concomitant]
     Active Substance: NADOLOL
  5. NARATRIPTAN [Concomitant]
     Active Substance: NARATRIPTAN HYDROCHLORIDE
  6. ZOFRAN [Concomitant]
     Active Substance: ONDANSETRON HYDROCHLORIDE
  7. PANTOPRAZOLE [Concomitant]
     Active Substance: PANTOPRAZOLE

REACTIONS (7)
  - Urinary tract infection [None]
  - Gallbladder enlargement [None]
  - Anorectal disorder [None]
  - Bile duct stone [None]
  - Hepatic cirrhosis [None]
  - Hypophagia [None]
  - Cholestasis [None]

NARRATIVE: CASE EVENT DATE: 20230719
